FAERS Safety Report 7266967-1 (Version None)
Quarter: 2011Q1

REPORT INFORMATION
  Report Type: 
  Country: None (occurrence: None)
  Receive Date: 20110121
  Receipt Date: 20110112
  Transmission Date: 20110831
  Serious: Yes (Hospitalization)
  Sender: FDA-Public Use
  Company Number: 2010US000103

PATIENT
  Age: 66 Year
  Sex: Female

DRUGS (8)
  1. ENABLEX [Concomitant]
  2. DYAZIDE [Concomitant]
  3. LISINOPRIL [Concomitant]
  4. STOOL SOFTENER [Concomitant]
  5. PREMPRO [Concomitant]
  6. PERCOCET [Concomitant]
  7. ALEVE [Concomitant]
  8. ENTEREG [Suspect]
     Indication: POSTOPERATIVE ILEUS
     Dosage: 12 MG; PO
     Route: 048
     Dates: start: 20090403, end: 20090406

REACTIONS (3)
  - JAUNDICE [None]
  - BLOOD URINE PRESENT [None]
  - HAEMOLYTIC ANAEMIA [None]
